FAERS Safety Report 24236453 (Version 3)
Quarter: 2024Q3

REPORT INFORMATION
  Report Type: Spontaneous
  Country: US (occurrence: US)
  Receive Date: 20240822
  Receipt Date: 20240912
  Transmission Date: 20241017
  Serious: No
  Sender: BIOVITRUM
  Company Number: US-BIOVITRUM-2024-US-011143

PATIENT
  Age: 78 Year
  Sex: Male

DRUGS (4)
  1. KINERET [Suspect]
     Active Substance: ANAKINRA
     Indication: Product used for unknown indication
     Dosage: 1X
     Route: 058
  2. KINERET [Suspect]
     Active Substance: ANAKINRA
     Dosage: AS ORDERED
     Route: 058
  3. NUMEROUS INSULINS [Concomitant]
     Indication: Product used for unknown indication
  4. PREDNISONE [Concomitant]
     Active Substance: PREDNISONE
     Indication: Product used for unknown indication

REACTIONS (3)
  - Drug ineffective [Unknown]
  - Nasopharyngitis [Unknown]
  - Rash [Unknown]
